FAERS Safety Report 4730664-4 (Version None)
Quarter: 2005Q3

REPORT INFORMATION
  Report Type: 
  Country: None (occurrence: None)
  Receive Date: 20050725
  Receipt Date: 20050301
  Transmission Date: 20060218
  Serious: No
  Sender: FDA-Public Use
  Company Number: USA050392133

PATIENT
  Age: 58 Year
  Sex: Male
  Weight: 61 kg

DRUGS (4)
  1. STRATTERA [Suspect]
     Indication: ATTENTION DEFICIT/HYPERACTIVITY DISORDER
     Dosage: 40 MG DAY
     Dates: start: 20050201
  2. PREDNISONE [Concomitant]
  3. THYROID TAB [Concomitant]
  4. ZETIA [Concomitant]

REACTIONS (3)
  - DRUG INTERACTION [None]
  - DYSURIA [None]
  - TESTICULAR PAIN [None]
